FAERS Safety Report 15664753 (Version 2)
Quarter: 2018Q4

REPORT INFORMATION
  Report Type: Report from Study
  Country: US (occurrence: US)
  Receive Date: 20181128
  Receipt Date: 20181218
  Transmission Date: 20190205
  Serious: Yes (Other)
  Sender: FDA-Public Use
  Company Number: US-TAKEDA-2018TUS033735

PATIENT
  Age: 67 Year
  Sex: Female

DRUGS (1)
  1. VEDOLIZUMAB [Suspect]
     Active Substance: VEDOLIZUMAB
     Indication: CROHN^S DISEASE
     Dosage: 300 MG, UNK
     Route: 042
     Dates: start: 20181112

REACTIONS (11)
  - Suicidal ideation [Unknown]
  - Cough [Not Recovered/Not Resolved]
  - Disability [Unknown]
  - Muscle spasms [Unknown]
  - Frequent bowel movements [Recovered/Resolved]
  - Glossodynia [Unknown]
  - Swollen tongue [Unknown]
  - Abdominal pain [Unknown]
  - Headache [Unknown]
  - Depression [Unknown]
  - Stress [Unknown]

NARRATIVE: CASE EVENT DATE: 201811
